FAERS Safety Report 15997509 (Version 1)
Quarter: 2019Q1

REPORT INFORMATION
  Report Type: Spontaneous
  Country: US (occurrence: US)
  Receive Date: 20190222
  Receipt Date: 20190222
  Transmission Date: 20190418
  Serious: Yes (Other)
  Sender: FDA-Public Use
  Company Number: US-ASTRAZENECA-2018SF25647

PATIENT
  Age: 20962 Day

DRUGS (6)
  1. NEXIUM [Suspect]
     Active Substance: ESOMEPRAZOLE MAGNESIUM
     Dosage: 40.0MG UNKNOWN
     Route: 048
     Dates: start: 20080530
  2. METOPROLOL. [Concomitant]
     Active Substance: METOPROLOL
     Dosage: 100.0MG UNKNOWN
     Dates: start: 20080530
  3. CLONIDINE. [Concomitant]
     Active Substance: CLONIDINE
     Dosage: 0.1MG UNKNOWN
     Dates: start: 20080530
  4. NEXIUM [Suspect]
     Active Substance: ESOMEPRAZOLE MAGNESIUM
     Route: 048
  5. PRILOSEC [Suspect]
     Active Substance: OMEPRAZOLE MAGNESIUM
     Route: 048
  6. PRILOSEC [Suspect]
     Active Substance: OMEPRAZOLE MAGNESIUM
     Dosage: GENERIC20.0MG UNKNOWN
     Route: 065
     Dates: start: 20080125

REACTIONS (3)
  - Tubulointerstitial nephritis [Unknown]
  - Acute kidney injury [Unknown]
  - Chronic kidney disease [Unknown]

NARRATIVE: CASE EVENT DATE: 20151215
